FAERS Safety Report 8196270-7 (Version None)
Quarter: 2012Q1

REPORT INFORMATION
  Report Type: 
  Country: None (occurrence: None)
  Receive Date: 20120307
  Receipt Date: 20120307
  Transmission Date: 20120608
  Serious: Yes (Other)
  Sender: FDA-Public Use
  Company Number: None

PATIENT
  Sex: Female
  Weight: 77 kg

DRUGS (2)
  1. NTG FACIAL MOISTURIZER UNSPECIFIED [Suspect]
     Indication: DRY SKIN
     Dosage: ONCE, TOPICAL
     Route: 061
     Dates: start: 20110501
  2. ATACAND [Concomitant]

REACTIONS (3)
  - PRURITUS [None]
  - BURNING SENSATION [None]
  - ERYTHEMA [None]
